FAERS Safety Report 16107140 (Version 1)
Quarter: 2019Q1

REPORT INFORMATION
  Report Type: Spontaneous
  Country: US (occurrence: US)
  Receive Date: 20190322
  Receipt Date: 20190322
  Transmission Date: 20190418
  Serious: Yes (Hospitalization, Other)
  Sender: FDA-Public Use
  Company Number: US-TEVA-2019-US-1026778

PATIENT
  Age: 81 Year
  Sex: Female

DRUGS (3)
  1. COPAXONE [Suspect]
     Active Substance: GLATIRAMER ACETATE
     Indication: MULTIPLE SCLEROSIS
     Route: 058
     Dates: start: 20181001
  2. COPAXONE [Suspect]
     Active Substance: GLATIRAMER ACETATE
     Route: 058
     Dates: start: 20180406
  3. COPAXONE [Suspect]
     Active Substance: GLATIRAMER ACETATE
     Route: 058
     Dates: start: 20070613

REACTIONS (7)
  - Diabetes mellitus [Unknown]
  - Gait disturbance [Recovered/Resolved]
  - Balance disorder [Unknown]
  - Limb discomfort [Recovered/Resolved]
  - Blood glucose increased [Recovered/Resolved]
  - Walking aid user [Unknown]
  - Dehydration [Unknown]

NARRATIVE: CASE EVENT DATE: 201803
